FAERS Safety Report 9780010 (Version 1)
Quarter: 2013Q4

REPORT INFORMATION
  Report Type: Spontaneous
  Country: US (occurrence: US)
  Receive Date: 20131223
  Receipt Date: 20131223
  Transmission Date: 20140711
  Serious: Yes (Other)
  Sender: FDA-Public Use
  Company Number: US-PFIZER INC-2013366236

PATIENT
  Age: 41 Year
  Sex: Female
  Weight: 101 kg

DRUGS (2)
  1. LYRICA [Suspect]
     Indication: FIBROMYALGIA
     Dosage: 225 MG, 2X/DAY
     Route: 048
     Dates: start: 2009
  2. OXYCODONE [Concomitant]
     Indication: INTERVERTEBRAL DISC DEGENERATION
     Dosage: 15 MG, 1X/DAY

REACTIONS (1)
  - Thyroid disorder [Unknown]
